FAERS Safety Report 7801519-3 (Version None)
Quarter: 2011Q4

REPORT INFORMATION
  Report Type: 
  Country: None (occurrence: None)
  Receive Date: 20111007
  Receipt Date: 20110928
  Transmission Date: 20120403
  Serious: Yes (Other)
  Sender: FDA-Public Use
  Company Number: CA-JNJFOC-20110703773

PATIENT
  Sex: Female
  Weight: 60 kg

DRUGS (2)
  1. REMICADE [Suspect]
     Indication: CROHN'S DISEASE
     Route: 042
     Dates: start: 20080901
  2. IMURAN [Concomitant]
     Route: 048

REACTIONS (3)
  - MUSCLE SPASMS [None]
  - DIARRHOEA [None]
  - HAEMATOCHEZIA [None]
